FAERS Safety Report 5106369-7 (Version None)
Quarter: 2006Q3

REPORT INFORMATION
  Report Type: 
  Country: None (occurrence: None)
  Receive Date: 20060918
  Receipt Date: 20060706
  Transmission Date: 20061208
  Serious: Yes (Other)
  Sender: FDA-Public Use
  Company Number: US-AVENTIS-200615848US

PATIENT
  Sex: Female
  Weight: 100 kg

DRUGS (17)
  1. ALLEGRA-D 12 HOUR [Suspect]
     Indication: MULTIPLE ALLERGIES
     Dosage: DOSE: UNK
     Route: 048
     Dates: start: 20050101
  2. PREVACID [Concomitant]
  3. SYNTHROID [Concomitant]
  4. SINGULAIR [Concomitant]
  5. ALLEGRA [Concomitant]
  6. RHINOCORT [Concomitant]
     Route: 045
  7. CALCIUM GLUCONATE [Concomitant]
  8. ALEVE (CAPLET) [Concomitant]
     Dosage: DOSE: 2-4 TABS
  9. ALBUTEROL [Concomitant]
     Dosage: DOSE: .83 MG
  10. ALBUTEROL [Concomitant]
     Dosage: DOSE: 17GM
  11. MULTIVITAMIN [Concomitant]
     Dosage: DOSE: UNK
  12. TENORMIN [Concomitant]
  13. POTASSIUM CHLORIDE [Concomitant]
  14. IRON [Concomitant]
  15. MAGNESIUM [Concomitant]
  16. ZINC [Concomitant]
  17. VITAMIN D3 [Concomitant]

REACTIONS (6)
  - COLECTOMY [None]
  - COLON OPERATION [None]
  - COLOSTOMY [None]
  - DRUG INEFFECTIVE [None]
  - MEDICATION RESIDUE [None]
  - TOE DEFORMITY [None]
